FAERS Safety Report 9985045 (Version 2)
Quarter: 2014Q1

REPORT INFORMATION
  Report Type: Spontaneous
  Country: JP (occurrence: JP)
  Receive Date: 20140307
  Receipt Date: 20140312
  Transmission Date: 20141002
  Serious: Yes (Death, Hospitalization)
  Sender: FDA-Public Use
  Company Number: JP-B.I. PHARMACEUTICALS,INC./RIDGEFIELD-2014-BI-09579YA

PATIENT
  Age: 65 Year
  Sex: Male

DRUGS (10)
  1. TAMSULOSIN [Suspect]
     Indication: PRODUCT USED FOR UNKNOWN INDICATION
     Route: 048
  2. STARSIS (NATEGLINIDE) [Suspect]
     Indication: PRODUCT USED FOR UNKNOWN INDICATION
     Route: 048
  3. CILOSTAZOL [Suspect]
     Indication: PRODUCT USED FOR UNKNOWN INDICATION
     Route: 048
  4. RABEPRAZOLE SODIUM [Suspect]
     Indication: PRODUCT USED FOR UNKNOWN INDICATION
     Route: 048
  5. CELLCEPT (MYCOPHENOLATE MOFETIL) TABLET [Suspect]
     Indication: PRODUCT USED FOR UNKNOWN INDICATION
     Dosage: 1500 MG
     Route: 048
  6. CELLCEPT (MYCOPHENOLATE MOFETIL) TABLET [Suspect]
     Route: 048
  7. CELLCEPT (MYCOPHENOLATE MOFETIL) TABLET [Suspect]
     Route: 048
  8. CICLOSPORIN [Suspect]
     Indication: PRODUCT USED FOR UNKNOWN INDICATION
     Route: 065
  9. CICLOSPORIN [Suspect]
     Route: 065
  10. PREDNISOLONE (PREDNISOLONE) [Concomitant]
     Route: 065

REACTIONS (3)
  - Cytomegalovirus gastroenteritis [Fatal]
  - Cytomegalovirus infection [Fatal]
  - Drug-induced liver injury [Unknown]
